FAERS Safety Report 14527568 (Version 4)
Quarter: 2018Q4

REPORT INFORMATION
  Report Type: Spontaneous
  Country: IT (occurrence: IT)
  Receive Date: 20180213
  Receipt Date: 20181210
  Transmission Date: 20190204
  Serious: Yes (Hospitalization, Other)
  Sender: FDA-Public Use
  Company Number: IT-SA-2018SA029632

PATIENT
  Age: 34 Year
  Sex: Male
  Weight: 70 kg

DRUGS (3)
  1. LEMTRADA [Suspect]
     Active Substance: ALEMTUZUMAB
     Indication: RELAPSING-REMITTING MULTIPLE SCLEROSIS
     Dosage: 12 MG, QD
     Route: 041
     Dates: start: 20160516, end: 20160520
  2. GILENYA [Concomitant]
     Active Substance: FINGOLIMOD HYDROCHLORIDE
     Dosage: UNK
     Route: 065
     Dates: start: 201602
  3. MIRTAZAPINE. [Concomitant]
     Active Substance: MIRTAZAPINE
     Indication: INSOMNIA
     Dosage: 15 MG,QD
     Route: 065
     Dates: start: 2006

REACTIONS (18)
  - Coombs indirect test positive [Recovered/Resolved]
  - Hypercreatininaemia [Recovered/Resolved]
  - Haemoglobin decreased [Recovered/Resolved]
  - Coombs direct test positive [Recovered/Resolved]
  - Red blood cell count decreased [Unknown]
  - Hyperhidrosis [Unknown]
  - Proteinuria [Recovered/Resolved]
  - Tachycardia [Unknown]
  - Thrombocytopenia [Recovering/Resolving]
  - Glomerulonephropathy [Recovered/Resolved]
  - Albuminuria [Recovered/Resolved]
  - Asthenia [Recovered/Resolved]
  - Haptoglobin decreased [Recovered/Resolved]
  - Blood lactate dehydrogenase increased [Recovered/Resolved]
  - Pallor [Unknown]
  - Autoimmune haemolytic anaemia [Recovered/Resolved]
  - Palpitations [Recovered/Resolved]
  - Anaemia [Recovered/Resolved]

NARRATIVE: CASE EVENT DATE: 20170410
